FAERS Safety Report 8930107 (Version 2)
Quarter: 2012Q4

REPORT INFORMATION
  Report Type: 
  Country: GB (occurrence: GB)
  Receive Date: 20121128
  Receipt Date: 20121207
  Transmission Date: 20130627
  Serious: Yes (Other)
  Sender: FDA-Public Use
  Company Number: GB-COVIDIEN/TYCO HEALTHCARE/MALLINCKRODT-T201204151

PATIENT
  Age: 39 Year
  Sex: Female

DRUGS (1)
  1. OPTIRAY 300 [Suspect]
     Indication: COMPUTERISED TOMOGRAM
     Dosage: 95 ml, single
     Route: 042
     Dates: start: 20121119, end: 20121119

REACTIONS (8)
  - Eye pain [Unknown]
  - Eye swelling [Unknown]
  - Generalised erythema [Unknown]
  - Pruritus generalised [Unknown]
  - Throat irritation [Unknown]
  - Malaise [Unknown]
  - Urticaria [Unknown]
  - Pharyngeal oedema [Unknown]
